FAERS Safety Report 25610867 (Version 1)
Quarter: 2025Q3

REPORT INFORMATION
  Report Type: Spontaneous
  Country: US (occurrence: None)
  Receive Date: 20250725
  Receipt Date: 20250725
  Transmission Date: 20251021
  Serious: Yes (Disabling)
  Sender: FDA-CTU
  Company Number: None

PATIENT
  Age: 79 Year
  Sex: Male
  Weight: 72 kg

DRUGS (5)
  1. DUPIXENT [Suspect]
     Active Substance: DUPILUMAB
     Indication: Dermatitis
     Dates: start: 20240201, end: 20240428
  2. TRELEGY ELLIPTA [Concomitant]
     Active Substance: FLUTICASONE FUROATE\UMECLIDINIUM BROMIDE\VILANTEROL TRIFENATATE
  3. Ellipta [Concomitant]
  4. VITAMINS [Concomitant]
     Active Substance: VITAMINS
  5. MINERALS [Concomitant]
     Active Substance: MINERALS

REACTIONS (4)
  - Lacrimation increased [None]
  - Arthralgia [None]
  - Pain in extremity [None]
  - Eyelid disorder [None]

NARRATIVE: CASE EVENT DATE: 20240501
